FAERS Safety Report 11491726 (Version 1)
Quarter: 2015Q3

REPORT INFORMATION
  Report Type: Spontaneous
  Country: US (occurrence: None)
  Receive Date: 20150909
  Receipt Date: 20150909
  Transmission Date: 20151125
  Serious: No
  Sender: FDA-Public Use
  Company Number: None

PATIENT
  Age: 57 Year
  Sex: Female
  Weight: 52.16 kg

DRUGS (1)
  1. METHYLPREDNISOLONE. [Suspect]
     Active Substance: METHYLPREDNISOLONE
     Indication: BACK PAIN
     Route: 048
     Dates: start: 20150513, end: 20150518

REACTIONS (2)
  - Abdominal pain lower [None]
  - Abdominal distension [None]

NARRATIVE: CASE EVENT DATE: 20150515
